FAERS Safety Report 20861770 (Version 1)
Quarter: 2022Q2

REPORT INFORMATION
  Report Type: Spontaneous
  Country: GB (occurrence: GB)
  Receive Date: 20220523
  Receipt Date: 20220523
  Transmission Date: 20220721
  Serious: Yes (Other)
  Sender: FDA-Public Use
  Company Number: GB-MHRA-MED-202205112054152530-HRFPN

PATIENT
  Age: 30 Year
  Sex: Female

DRUGS (1)
  1. METHYLPREDNISOLONE [Suspect]
     Active Substance: METHYLPREDNISOLONE
     Dosage: UNK
     Route: 030

REACTIONS (10)
  - Arthralgia [Recovered/Resolved]
  - Muscular weakness [Recovered/Resolved]
  - Paraesthesia [Recovered/Resolved]
  - Fall [Recovered/Resolved]
  - Skin burning sensation [Recovered/Resolved]
  - Neuropathy peripheral [Recovered/Resolved]
  - Flushing [Recovered/Resolved]
  - Neuralgia [Recovered/Resolved]
  - Ligament sprain [Unknown]
  - Muscle spasms [Unknown]
